FAERS Safety Report 4365261-6 (Version None)
Quarter: 2004Q2

REPORT INFORMATION
  Report Type: 
  Country: None (occurrence: None)
  Receive Date: 20040525
  Receipt Date: 20040423
  Transmission Date: 20050107
  Serious: No
  Sender: FDA-Public Use
  Company Number: PHEH2004US04555

PATIENT
  Age: 47 Year
  Sex: Female

DRUGS (1)
  1. ZELNORM [Suspect]
     Indication: IRRITABLE BOWEL SYNDROME
     Dosage: 3 MG, BID, ORAL
     Route: 048
     Dates: start: 20040418, end: 20040422

REACTIONS (1)
  - BREAST TENDERNESS [None]
